FAERS Safety Report 7588491-9 (Version None)
Quarter: 2011Q2

REPORT INFORMATION
  Report Type: 
  Country: None (occurrence: None)
  Receive Date: 20110627
  Receipt Date: 20100809
  Transmission Date: 20111010
  Serious: Yes (Other)
  Sender: FDA-Public Use
  Company Number: CR10-0277

PATIENT
  Sex: Male

DRUGS (1)
  1. PRIMATENE MIST [Suspect]

REACTIONS (2)
  - EYE INJURY [None]
  - DEVICE BREAKAGE [None]
